FAERS Safety Report 9275948 (Version 2)
Quarter: 2013Q3

REPORT INFORMATION
  Report Type: Spontaneous
  Country: US (occurrence: US)
  Receive Date: 20130507
  Receipt Date: 20130711
  Transmission Date: 20140515
  Serious: Yes (Hospitalization)
  Sender: FDA-Public Use
  Company Number: US-009507513-1304USA016687

PATIENT
  Age: 24 Year
  Sex: Female
  Weight: 70.3 kg

DRUGS (1)
  1. NUVARING [Suspect]
     Dosage: UNK
     Route: 067
     Dates: start: 2013

REACTIONS (4)
  - Ovarian vein thrombosis [Unknown]
  - Pelvic congestion [Unknown]
  - Ovarian cyst [Unknown]
  - Hepatic steatosis [Unknown]
